FAERS Safety Report 16256773 (Version 3)
Quarter: 2019Q2

REPORT INFORMATION
  Report Type: Spontaneous
  Country: HU (occurrence: HU)
  Receive Date: 20190430
  Receipt Date: 20190430
  Transmission Date: 20190711
  Serious: Yes (Hospitalization, Other)
  Sender: FDA-Public Use
  Company Number: PHHY2019HU091160

PATIENT
  Age: 13 Year
  Sex: Male

DRUGS (5)
  1. MOXIFLOXACIN. [Suspect]
     Active Substance: MOXIFLOXACIN
     Indication: CONJUNCTIVITIS
     Route: 065
  2. AMOXICILLIN + CLAVULANATE POTASSIUM [Suspect]
     Active Substance: AMOXICILLIN\CLAVULANATE POTASSIUM
     Indication: CONJUNCTIVITIS
     Route: 051
  3. TOBRAMYCIN. [Suspect]
     Active Substance: TOBRAMYCIN
     Indication: CONJUNCTIVITIS
     Dosage: UNK
     Route: 065
  4. TOBRAMYCIN. [Suspect]
     Active Substance: TOBRAMYCIN
     Indication: EYE SWELLING
  5. CEFUROXIME. [Suspect]
     Active Substance: CEFUROXIME
     Indication: CONJUNCTIVITIS
     Route: 065

REACTIONS (10)
  - Eye movement disorder [Recovered/Resolved]
  - Therapy non-responder [Unknown]
  - Exophthalmos [Recovered/Resolved]
  - Cellulitis orbital [Recovered/Resolved]
  - Conjunctivitis [Recovered/Resolved]
  - Swelling [Unknown]
  - Eye pain [Recovered/Resolved]
  - Diplopia [Recovered/Resolved]
  - Erythema of eyelid [Recovered/Resolved]
  - Orbital myositis [Recovered/Resolved]
